FAERS Safety Report 9644850 (Version 4)
Quarter: 2014Q1

REPORT INFORMATION
  Report Type: Spontaneous
  Country: GB (occurrence: GB)
  Receive Date: 20131025
  Receipt Date: 20140114
  Transmission Date: 20141002
  Serious: Yes (Other)
  Sender: FDA-Public Use
  Company Number: PHFR2013GB006002

PATIENT
  Age: 66 Year
  Sex: Male

DRUGS (7)
  1. CLOZARIL [Suspect]
     Indication: SCHIZOPHRENIA
     Dosage: UNK
     Route: 048
     Dates: start: 20130228
  2. CLOZARIL [Suspect]
     Indication: PSYCHOTIC DISORDER
     Dosage: 31.25 MG, UNK
     Route: 048
     Dates: start: 201303
  3. RIVASTIGMINE [Concomitant]
     Indication: PARKINSON^S DISEASE
     Dosage: 9.5 MG, UNK
     Route: 061
     Dates: start: 2011
  4. SINEMET [Concomitant]
     Indication: PARKINSON^S DISEASE
     Dosage: 175 MG, UNK
     Route: 048
     Dates: start: 2003
  5. SINEMET-CR [Concomitant]
     Indication: PARKINSON^S DISEASE
     Dosage: 175 MG, UNK
     Route: 048
     Dates: start: 2003
  6. ENTACAPONE [Concomitant]
     Indication: PARKINSON^S DISEASE
     Dosage: 60 MG, UNK
     Route: 048
     Dates: start: 2003
  7. FESOTERODINE [Concomitant]
     Indication: URINARY HESITATION
     Dosage: 4 MG, UNK
     Route: 048
     Dates: start: 2012

REACTIONS (5)
  - Urinary tract infection [Recovered/Resolved]
  - Malaise [Recovered/Resolved]
  - White blood cell count increased [Unknown]
  - Neutrophil count increased [Unknown]
  - Platelet count increased [Unknown]
